FAERS Safety Report 12398410 (Version 1)
Quarter: 2016Q2

REPORT INFORMATION
  Report Type: Spontaneous
  Country: FR (occurrence: FR)
  Receive Date: 20160524
  Receipt Date: 20160524
  Transmission Date: 20160815
  Serious: Yes (Life-Threatening, Other)
  Sender: FDA-Public Use
  Company Number: FR-SHENZHEN TECHDOW PHARMACEUTICAL CO. LTD-FR-2016TEC0000018

PATIENT

DRUGS (6)
  1. ANTITHYMOCYTE IMMUNOGLOBULIN [Concomitant]
     Active Substance: THYMOCYTE IMMUNE GLOBULIN NOS
     Indication: IMMUNOSUPPRESSION
     Dosage: UNK
  2. HEPARIN SODIUM INJECTION USP, PRESERVATIVE FREE [Suspect]
     Active Substance: HEPARIN SODIUM
     Indication: PROPHYLAXIS
     Dosage: 35 IU/KG, ONCE
     Route: 042
  3. HEPARIN SODIUM INJECTION USP, PRESERVATIVE FREE [Suspect]
     Active Substance: HEPARIN SODIUM
     Indication: INFLAMMATION
     Dosage: 15 IU/KG/HR, CONTINUOUS
     Route: 042
  4. ENBREL [Concomitant]
     Active Substance: ETANERCEPT
     Indication: ANTIINFLAMMATORY THERAPY
     Dosage: 50 MG, UNK
     Route: 042
  5. HEPARIN SODIUM INJECTION USP, PRESERVATIVE FREE [Suspect]
     Active Substance: HEPARIN SODIUM
     Indication: THROMBOSIS PROPHYLAXIS
  6. ASPIRIN                            /00002701/ [Suspect]
     Active Substance: ASPIRIN
     Indication: ANGIOPATHY
     Dosage: 75 MG, QD

REACTIONS (8)
  - Respiratory distress [Recovered/Resolved]
  - Abdominal pain upper [Recovered/Resolved]
  - Pleural effusion [Recovered/Resolved]
  - Shock [Recovered/Resolved]
  - Pallor [Recovered/Resolved]
  - Orthopnoea [Recovered/Resolved]
  - Haemothorax [Recovered/Resolved]
  - Breath sounds absent [Recovered/Resolved]
